FAERS Safety Report 6616237-7 (Version None)
Quarter: 2010Q1

REPORT INFORMATION
  Report Type: 
  Country: None (occurrence: None)
  Receive Date: 20100305
  Receipt Date: 20100224
  Transmission Date: 20100710
  Serious: Yes (Other)
  Sender: FDA-Public Use
  Company Number: GXKR2010NO02177

PATIENT
  Sex: Female

DRUGS (5)
  1. ENALAPRIL (NGX) [Suspect]
     Indication: HYPERTENSION
     Route: 048
     Dates: start: 20091215
  2. SPIRIVA [Concomitant]
     Route: 065
  3. VAGIFEM [Concomitant]
     Route: 065
  4. SYMBICORT [Concomitant]
     Route: 065
  5. BRICANYL [Concomitant]
     Dosage: AS NEEDED
     Route: 065

REACTIONS (2)
  - DYSPNOEA [None]
  - OEDEMA PERIPHERAL [None]
